FAERS Safety Report 13557776 (Version 1)
Quarter: 2017Q2

REPORT INFORMATION
  Report Type: Spontaneous
  Country: US (occurrence: US)
  Receive Date: 20170518
  Receipt Date: 20170518
  Transmission Date: 20170830
  Serious: Yes (Life-Threatening, Other)
  Sender: FDA-Public Use
  Company Number: US-INCYTE CORPORATION-2017IN003813

PATIENT

DRUGS (6)
  1. CICLOSPORIN [Suspect]
     Active Substance: CYCLOSPORINE
     Indication: STEM CELL TRANSPLANT
     Route: 065
  2. JAKAFI [Suspect]
     Active Substance: RUXOLITINIB
     Indication: ACUTE GRAFT VERSUS HOST DISEASE IN SKIN
     Dosage: 10 MG, BID
     Route: 048
  3. METHOTREXATE (NGX) (METHOTREXATE) UNKNOWN [Suspect]
     Active Substance: METHOTREXATE
     Indication: STEM CELL TRANSPLANT
     Route: 065
  4. METHOTREXATE (NGX) (METHOTREXATE) UNKNOWN [Suspect]
     Active Substance: METHOTREXATE
     Indication: PROPHYLAXIS AGAINST GRAFT VERSUS HOST DISEASE
  5. JAKAFI [Suspect]
     Active Substance: RUXOLITINIB
     Indication: GRAFT VERSUS HOST DISEASE IN GASTROINTESTINAL TRACT
     Dosage: 5 MG, BID
     Route: 048
  6. CICLOSPORIN [Suspect]
     Active Substance: CYCLOSPORINE
     Indication: PROPHYLAXIS AGAINST GRAFT VERSUS HOST DISEASE

REACTIONS (8)
  - Thrombocytopenia [Recovered/Resolved]
  - Neutropenia [Recovered/Resolved]
  - Acute graft versus host disease in skin [Not Recovered/Not Resolved]
  - Graft versus host disease in gastrointestinal tract [Not Recovered/Not Resolved]
  - Obliterative bronchiolitis [None]
  - Drug administered to patient of inappropriate age [Unknown]
  - Alanine aminotransferase [Recovered/Resolved]
  - Product use in unapproved indication [Unknown]
